FAERS Safety Report 12992236 (Version 1)
Quarter: 2016Q4

REPORT INFORMATION
  Report Type: Spontaneous
  Country: GB (occurrence: GB)
  Receive Date: 20161201
  Receipt Date: 20161201
  Transmission Date: 20170207
  Serious: Yes (Other)
  Sender: FDA-Public Use
  Company Number: GB-JNJFOC-20161124514

PATIENT
  Age: 16 Year
  Sex: Female
  Weight: 82 kg

DRUGS (6)
  1. BECONASE AQ [Concomitant]
     Active Substance: BECLOMETHASONE DIPROPIONATE MONOHYDRATE
     Indication: PRODUCT USED FOR UNKNOWN INDICATION
     Dosage: DOSE: 2 PUFFS TO EACH NOSTRIL. CUMULATIVE DOSE TO FIRST REACTION: 1092.02  (UNIT UNSPECIFIED).
     Route: 065
     Dates: start: 20160212, end: 20160930
  2. TERBINAFINE. [Concomitant]
     Active Substance: TERBINAFINE
     Indication: PRODUCT USED FOR UNKNOWN INDICATION
     Dosage: DOSE: 1 (UNIT UNSPECIFIED), CUMULATIVE DOSE TO FIRST REACTION: 2 (UNIT UNSPECIFIED).
     Route: 065
     Dates: start: 20161111
  3. FEXOFENADINE [Concomitant]
     Active Substance: FEXOFENADINE\FEXOFENADINE HYDROCHLORIDE
     Indication: PRODUCT USED FOR UNKNOWN INDICATION
     Dosage: DOSE: 1 (UNIT UNSPECIFIED). CUMULATIVE DOSE TO FIRST REACTION: 273 (UNIT UNSPECIFIED)
     Route: 065
     Dates: start: 20160212
  4. IBUPROFEN. [Suspect]
     Active Substance: IBUPROFEN
     Route: 065
  5. IBUPROFEN. [Suspect]
     Active Substance: IBUPROFEN
     Indication: PRODUCT USED FOR UNKNOWN INDICATION
     Route: 065
     Dates: start: 20161111
  6. DERMOL [Concomitant]
     Active Substance: BENZALKONIUM CHLORIDE\CHLORHEXIDINE HYDROCHLORIDE\ISOPROPYL MYRISTATE\PARAFFIN
     Indication: PRODUCT USED FOR UNKNOWN INDICATION
     Dosage: USE AS SOAP SUBSTITUTE
     Route: 065
     Dates: start: 20161111

REACTIONS (1)
  - Vomiting [Recovered/Resolved]

NARRATIVE: CASE EVENT DATE: 20161111
